FAERS Safety Report 9491156 (Version 1)
Quarter: 2013Q3

REPORT INFORMATION
  Report Type: Spontaneous
  Country: US (occurrence: None)
  Receive Date: 20130827
  Receipt Date: 20130827
  Transmission Date: 20140515
  Serious: Yes (Hospitalization)
  Sender: FDA-Public Use
  Company Number: 2013STPI000332

PATIENT
  Age: 31 Year
  Sex: Male
  Weight: 80.3 kg

DRUGS (7)
  1. ONCASPAR [Suspect]
     Indication: ACUTE LYMPHOCYTIC LEUKAEMIA
  2. VELCADE (BORTEZOMIB) [Suspect]
     Indication: ACUTE LYMPHOCYTIC LEUKAEMIA
     Dates: start: 20130709, end: 20130719
  3. VINCRISTINE SULFATE (VINCRISTINE SULFATE) [Suspect]
     Indication: ACUTE LYMPHOCYTIC LEUKAEMIA
  4. DOXORUBICIN HYDROCHLORIDE [Suspect]
     Indication: ACUTE LYMPHOCYTIC LEUKAEMIA
  5. DEXAMETHASONE [Suspect]
     Indication: ACUTE LYMPHOCYTIC LEUKAEMIA
  6. CYTARANINR [Suspect]
     Indication: ACUTE LYMPHOCYTIC LEUKAEMIA
     Route: 037
  7. METHOTREXATE SODIUM (METHOTREXATE SODIUM) [Suspect]
     Indication: ACUTE LYMPHOCYTIC LEUKAEMIA
     Route: 037

REACTIONS (3)
  - Venoocclusive liver disease [None]
  - Blood pressure decreased [None]
  - Oxygen saturation decreased [None]
